FAERS Safety Report 8448656-0 (Version None)
Quarter: 2012Q2

REPORT INFORMATION
  Report Type: 
  Country: None (occurrence: None)
  Receive Date: 20120619
  Receipt Date: 20120612
  Transmission Date: 20120825
  Serious: Yes (Hospitalization, Congenital Anomaly)
  Sender: FDA-Public Use
  Company Number: FR-UCBSA-037964

PATIENT
  Sex: Male
  Weight: 6.86 kg

DRUGS (1)
  1. KEPPRA [Suspect]
     Route: 064

REACTIONS (3)
  - FALLOT'S TETRALOGY [None]
  - LOW BIRTH WEIGHT BABY [None]
  - FOETAL EXPOSURE DURING PREGNANCY [None]
